FAERS Safety Report 4954687-5 (Version None)
Quarter: 2006Q1

REPORT INFORMATION
  Report Type: 
  Country: None (occurrence: None)
  Receive Date: 20060131
  Receipt Date: 20051101
  Transmission Date: 20060701
  Serious: No
  Sender: FDA-Public Use
  Company Number: WAES 0511USA00205

PATIENT
  Age: 70 Year
  Sex: Female

DRUGS (2)
  1. EMEND [Suspect]
     Dosage: SEE IMAGE
     Route: 048
     Dates: start: 20051025
  2. THERAPY UNSPECIFIED [Concomitant]

REACTIONS (2)
  - CONSTIPATION [None]
  - INSOMNIA [None]
